FAERS Safety Report 6015173-7 (Version None)
Quarter: 2008Q4

REPORT INFORMATION
  Report Type: 
  Country: None (occurrence: None)
  Receive Date: 20081219
  Receipt Date: 20081219
  Transmission Date: 20090506
  Serious: Yes (Life-Threatening, Hospitalization, Disabling, Other)
  Sender: FDA-Public Use
  Company Number: None

PATIENT
  Age: 49 Year
  Sex: Female

DRUGS (2)
  1. POUXIT, MANUFACTURER: THORNTON AND ROSSDIMETHICONE-BASED TOPICAL PRODU [Suspect]
     Indication: LICE INFESTATION
     Dosage: TOPICAL
     Route: 061
  2. . [Concomitant]

REACTIONS (2)
  - MEDICATION ERROR [None]
  - THERMAL BURN [None]
